FAERS Safety Report 4388122-5 (Version None)
Quarter: 2004Q2

REPORT INFORMATION
  Report Type: 
  Country: None (occurrence: None)
  Receive Date: 20040629
  Receipt Date: 20040629
  Transmission Date: 20050107
  Serious: Yes (Other)
  Sender: FDA-Public Use
  Company Number: None

PATIENT
  Age: 53 Year
  Sex: Female
  Weight: 58.9676 kg

DRUGS (1)
  1. ZOCOR [Suspect]
     Indication: AUTOIMMUNE DISORDER

REACTIONS (2)
  - MALAISE [None]
  - PHARMACEUTICAL PRODUCT COMPLAINT [None]
